FAERS Safety Report 9461590 (Version 2)
Quarter: 2013Q3

REPORT INFORMATION
  Report Type: Spontaneous
  Country: US (occurrence: US)
  Receive Date: 20130816
  Receipt Date: 20130910
  Transmission Date: 20140515
  Serious: Yes (Other)
  Sender: FDA-Public Use
  Company Number: US-PFIZER INC-2013237488

PATIENT
  Age: 50 Year
  Sex: Female
  Weight: 77.1 kg

DRUGS (7)
  1. LYRICA [Suspect]
     Indication: DIABETIC NEUROPATHY
     Dosage: 150 MG, 2X/DAY
     Route: 048
     Dates: end: 2013
  2. LYRICA [Suspect]
     Indication: FIBROMYALGIA
  3. LISINOPRIL [Concomitant]
     Indication: HYPERTENSION
     Dosage: UNK
  4. CYMBALTA [Concomitant]
     Indication: DEPRESSION
     Dosage: UNK
  5. NORCO [Concomitant]
     Indication: PAIN
     Dosage: UNK
  6. LORAZEPAM [Concomitant]
     Indication: ANXIETY
     Dosage: UNK
  7. FENTANYL [Concomitant]
     Dosage: UNK

REACTIONS (6)
  - Drug withdrawal syndrome [Unknown]
  - Depression [Unknown]
  - Pain [Unknown]
  - Weight decreased [Unknown]
  - Pain in extremity [Unknown]
  - Neuralgia [Unknown]
